FAERS Safety Report 13685753 (Version 2)
Quarter: 2017Q3

REPORT INFORMATION
  Report Type: Spontaneous
  Country: SA (occurrence: SA)
  Receive Date: 20170623
  Receipt Date: 20170714
  Transmission Date: 20171127
  Serious: Yes (Hospitalization, Other)
  Sender: FDA-Public Use
  Company Number: SA-AMGEN-SAUSP2017093667

PATIENT
  Age: 29 Year
  Sex: Female
  Weight: 57 kg

DRUGS (12)
  1. INDERAL [Concomitant]
     Active Substance: PROPRANOLOL HYDROCHLORIDE
     Dosage: 20 MG, TID
     Route: 048
     Dates: start: 20150422
  2. CEFTAZIDIME. [Concomitant]
     Active Substance: CEFTAZIDIME
     Dosage: 1 G, TID
     Route: 042
     Dates: start: 20150419
  3. FILGRASTIM [Suspect]
     Active Substance: FILGRASTIM
     Indication: AGRANULOCYTOSIS
     Dosage: 300 MUG, QD
     Route: 058
     Dates: start: 20150417
  4. FILGRASTIM [Suspect]
     Active Substance: FILGRASTIM
     Dosage: 300 MUG, QD
     Route: 058
     Dates: start: 20150422, end: 20150423
  5. PARACETAMOL [Concomitant]
     Active Substance: ACETAMINOPHEN
     Indication: PYREXIA
     Dosage: 1 G, TID (AS NECESSARY)
     Route: 048
     Dates: start: 20150331
  6. INDERAL [Concomitant]
     Active Substance: PROPRANOLOL HYDROCHLORIDE
     Dosage: 10 MG, TID
     Route: 048
     Dates: start: 20150420
  7. PARACETAMOL [Concomitant]
     Active Substance: ACETAMINOPHEN
     Indication: HYPERPYREXIA
     Dosage: 1 G, Q8H (AS NECESSARY)
     Route: 048
     Dates: start: 20150416
  8. MEROPENEM. [Concomitant]
     Active Substance: MEROPENEM
     Dosage: 1 G, Q8H
     Route: 042
     Dates: start: 20150416, end: 20150419
  9. INDERAL [Concomitant]
     Active Substance: PROPRANOLOL HYDROCHLORIDE
     Dosage: 10 MG, TID (FOR 1 MONTH)
     Route: 048
     Dates: start: 20150319, end: 20150417
  10. DEXTROSE W/SODIUM CHLORIDE [Concomitant]
     Active Substance: DEXTROSE\SODIUM CHLORIDE
     Dosage: 50 ML, QH
     Route: 042
     Dates: start: 20150416
  11. DEXAMETHASONE. [Concomitant]
     Active Substance: DEXAMETHASONE
     Dosage: 4 MG, Q8H
     Route: 042
     Dates: start: 20150422
  12. ITRACONAZOLE. [Concomitant]
     Active Substance: ITRACONAZOLE
     Dosage: 100 MG, QD
     Route: 048
     Dates: start: 20150416

REACTIONS (3)
  - Inappropriate schedule of drug administration [Unknown]
  - Klebsiella test positive [Unknown]
  - Off label use [Unknown]

NARRATIVE: CASE EVENT DATE: 20150417
